FAERS Safety Report 5426193-5 (Version None)
Quarter: 2007Q3

REPORT INFORMATION
  Report Type: 
  Country: None (occurrence: None)
  Receive Date: 20070827
  Receipt Date: 20070823
  Transmission Date: 20080115
  Serious: Yes (Hospitalization)
  Sender: FDA-Public Use
  Company Number: A0676123A

PATIENT
  Age: 15 Year
  Sex: Female

DRUGS (1)
  1. AEROLIN [Suspect]
     Indication: SUICIDE ATTEMPT
     Dosage: 40MG SINGLE DOSE
     Dates: start: 20070821, end: 20070821

REACTIONS (3)
  - INTENTIONAL OVERDOSE [None]
  - SUICIDE ATTEMPT [None]
  - TACHYCARDIA [None]
